FAERS Safety Report 12566320 (Version 2)
Quarter: 2016Q3

REPORT INFORMATION
  Report Type: Spontaneous
  Country: HK (occurrence: HK)
  Receive Date: 20160718
  Receipt Date: 20160817
  Transmission Date: 20161109
  Serious: Yes (Death, Other)
  Sender: FDA-Public Use
  Company Number: HK-ASTRAZENECA-2016SE74926

PATIENT
  Sex: Male

DRUGS (5)
  1. DENOSUMAB [Concomitant]
     Active Substance: DENOSUMAB
     Indication: METASTASES TO BONE
     Dosage: 120 MG MONTHLY
     Route: 058
     Dates: start: 201201, end: 201605
  2. CALTRATE AND VITAMIN D2 [Concomitant]
     Indication: METASTASES TO BONE
     Dosage: IS A REASONABLE
     Route: 048
     Dates: start: 201201, end: 201605
  3. URSOFALK [Concomitant]
     Active Substance: URSODIOL
     Indication: LIVER DISORDER
     Dates: start: 201312, end: 201605
  4. TAGRISSO [Suspect]
     Active Substance: OSIMERTINIB
     Indication: BRONCHIAL CARCINOMA
     Route: 048
     Dates: start: 20151218, end: 20160527
  5. SYMBICORT [Concomitant]
     Active Substance: BUDESONIDE\FORMOTEROL FUMARATE DIHYDRATE
     Dosage: 2 PUFFS BID PRN

REACTIONS (6)
  - Cardiopulmonary failure [Fatal]
  - Atrial fibrillation [Fatal]
  - Lung infection [Unknown]
  - Metastasis [Unknown]
  - Pericardial effusion [Unknown]
  - Disease progression [Unknown]

NARRATIVE: CASE EVENT DATE: 201603
